FAERS Safety Report 13057604 (Version 1)
Quarter: 2016Q4

REPORT INFORMATION
  Report Type: Spontaneous
  Country: US (occurrence: US)
  Receive Date: 20161223
  Receipt Date: 20161223
  Transmission Date: 20170207
  Serious: Yes (Other)
  Sender: FDA-Public Use
  Company Number: US-AUROBINDO-AUR-APL-2016-15460

PATIENT
  Age: 57 Year
  Sex: Male

DRUGS (10)
  1. RISPERIDONE. [Suspect]
     Active Substance: RISPERIDONE
     Indication: SCHIZOPHRENIA
     Dosage: UNK, TOTAL DAILY DOSE OF 6 MG AND UP TO 6.5 MG AS NEEDED
     Route: 065
     Dates: start: 2000, end: 2006
  2. RISPERIDONE. [Suspect]
     Active Substance: RISPERIDONE
     Dosage: 4.5 MG, UNK
     Route: 065
     Dates: start: 2006, end: 2008
  3. RISPERIDONE. [Suspect]
     Active Substance: RISPERIDONE
     Dosage: 4 MG, UNK
     Route: 065
     Dates: start: 2008, end: 2009
  4. RISPERIDONE. [Suspect]
     Active Substance: RISPERIDONE
     Dosage: 3 MG, UNK
     Route: 065
     Dates: start: 2009, end: 2011
  5. RISPERIDONE. [Suspect]
     Active Substance: RISPERIDONE
     Dosage: 2.5 MG, UNK
     Route: 065
     Dates: start: 2011, end: 201109
  6. TEMOZOLOMIDE. [Concomitant]
     Active Substance: TEMOZOLOMIDE
     Indication: GLIOBLASTOMA
     Dosage: UNK, 75 KG/M2
     Route: 065
     Dates: end: 20061005
  7. TEMOZOLOMIDE. [Concomitant]
     Active Substance: TEMOZOLOMIDE
     Dosage: 75 MG/M2, LOW-DOSE INTAKE EVERY DAY FOR 6 WEEKS WITH 2-WEEK GAPS IN BETWEEN THE 6-WEEK CYCLES.
     Route: 065
  8. AVASTIN                            /00848101/ [Concomitant]
     Active Substance: SIMVASTATIN
     Indication: GLIOBLASTOMA
     Dosage: UNK
     Route: 065
  9. TEMOZOLOMIDE. [Concomitant]
     Active Substance: TEMOZOLOMIDE
     Dosage: UNK, 150 KG/M2
     Dates: end: 201112
  10. RISPERIDONE. [Suspect]
     Active Substance: RISPERIDONE
     Dosage: 2 MG, UNK
     Route: 065
     Dates: start: 201109

REACTIONS (3)
  - Gait disturbance [Unknown]
  - Cognitive disorder [Unknown]
  - Overdose [Unknown]
